FAERS Safety Report 4376483-2 (Version None)
Quarter: 2004Q2

REPORT INFORMATION
  Report Type: 
  Country: None (occurrence: None)
  Receive Date: 20040608
  Receipt Date: 20040524
  Transmission Date: 20050107
  Serious: Yes (Hospitalization)
  Sender: FDA-Public Use
  Company Number: US-JNJFOC-20040505279

PATIENT
  Age: 21 Year
  Sex: Female

DRUGS (2)
  1. DURAGESIC [Suspect]
     Indication: PAIN
     Dosage: SEE IMAGE
     Route: 042
  2. CLONIDINE [Concomitant]

REACTIONS (3)
  - DRUG ABUSER [None]
  - OVERDOSE [None]
  - RESPIRATORY ARREST [None]
